FAERS Safety Report 23194712 (Version 1)
Quarter: 2023Q4

REPORT INFORMATION
  Report Type: Spontaneous
  Country: US (occurrence: US)
  Receive Date: 20231117
  Receipt Date: 20231117
  Transmission Date: 20240110
  Serious: No
  Sender: FDA-Public Use
  Company Number: US-drreddys-SPO/USA/23/0180179

PATIENT
  Sex: Female

DRUGS (1)
  1. IBANDRONATE SODIUM [Suspect]
     Active Substance: IBANDRONATE SODIUM
     Indication: Osteopenia
     Dates: start: 20231003

REACTIONS (4)
  - Dyspnoea [Unknown]
  - Myalgia [Unknown]
  - Neck pain [Unknown]
  - Diarrhoea [Unknown]
